FAERS Safety Report 6679609-0 (Version None)
Quarter: 2010Q2

REPORT INFORMATION
  Report Type: 
  Country: None (occurrence: None)
  Receive Date: 20100408
  Receipt Date: 20090807
  Transmission Date: 20101027
  Serious: No
  Sender: FDA-Public Use
  Company Number: 2009-00455

PATIENT
  Age: 74 Year
  Sex: Male
  Weight: 79.8331 kg

DRUGS (6)
  1. ZICAM COLD REMEDY NASAL GEL [Suspect]
     Dosage: QID - OFF + ON : YEARS AGO - JUN-2009
     Dates: end: 20090601
  2. ZICAM COLD REMEDY NASAL GEL [Suspect]
     Dosage: QID - OFF + ON : YEARS AGO - JUN-2009
  3. LIPITOR [Concomitant]
  4. PLAVIX [Concomitant]
  5. ASPIRIN [Concomitant]
  6. XANEX [Concomitant]

REACTIONS (1)
  - ANOSMIA [None]
